FAERS Safety Report 6396907-9 (Version None)
Quarter: 2009Q4

REPORT INFORMATION
  Report Type: 
  Country: None (occurrence: None)
  Receive Date: 20091012
  Receipt Date: 20090618
  Transmission Date: 20100525
  Serious: No
  Sender: FDA-Public Use
  Company Number: US-ASTRAZENECA-2009UW16106

PATIENT
  Age: 87 Year
  Sex: Female
  Weight: 49.9 kg

DRUGS (7)
  1. SYMBICORT [Suspect]
     Indication: ASTHMA
     Dosage: 160/7.5, 1 PUFF
     Route: 055
     Dates: start: 20090614
  2. SYMBICORT [Suspect]
     Indication: LUNG INFECTION
     Dosage: 160/7.5, 1 PUFF
     Route: 055
     Dates: start: 20090614
  3. GENERIC DYAZIDE [Concomitant]
  4. DIOVAN [Concomitant]
  5. CALCIUM [Concomitant]
  6. VITAMIN D [Concomitant]
  7. CORTISON [Concomitant]
     Dates: start: 20090615

REACTIONS (3)
  - COUGH [None]
  - DYSPHONIA [None]
  - INCREASED UPPER AIRWAY SECRETION [None]
